FAERS Safety Report 8952566 (Version 2)
Quarter: 2013Q1

REPORT INFORMATION
  Report Type: Spontaneous
  Country: DK (occurrence: DE)
  Receive Date: 20121205
  Receipt Date: 20130116
  Transmission Date: 20140127
  Serious: Yes (Congenital Anomaly)
  Sender: FDA-Public Use
  Company Number: DE-FRI-1000040804

PATIENT
  Sex: Female
  Weight: 3.2 kg

DRUGS (3)
  1. CITALOPRAM [Suspect]
     Indication: DEPRESSION
     Dosage: 20 MG
     Route: 064
     Dates: start: 20070714
  2. CITALOPRAM [Suspect]
     Dosage: 10 MG
     Route: 064
     Dates: end: 20080421
  3. IBUPROFEN [Concomitant]
     Indication: PAIN
     Dosage: 400 MG ON DEMAND
     Route: 064

REACTIONS (3)
  - Double outlet right ventricle [Recovered/Resolved with Sequelae]
  - Ventricular septal defect [Recovered/Resolved with Sequelae]
  - Foetal exposure during pregnancy [Recovered/Resolved with Sequelae]
